FAERS Safety Report 10072806 (Version 1)
Quarter: 2014Q2

REPORT INFORMATION
  Report Type: Spontaneous
  Country: SG (occurrence: None)
  Receive Date: 20140409
  Receipt Date: 20140409
  Transmission Date: 20141212
  Serious: Yes (Hospitalization, Other)
  Sender: FDA-Public Use
  Company Number: NSR_01537_2014

PATIENT
  Age: 58 Year
  Sex: Female

DRUGS (1)
  1. ALLOPURINOL (ALLOPURINOL) [Suspect]
     Indication: PRODUCT USED FOR UNKNOWN INDICATION

REACTIONS (1)
  - Drug reaction with eosinophilia and systemic symptoms [None]
